FAERS Safety Report 13900568 (Version 1)
Quarter: 2017Q3

REPORT INFORMATION
  Report Type: Spontaneous
  Country: FR (occurrence: FR)
  Receive Date: 20170824
  Receipt Date: 20170824
  Transmission Date: 20171127
  Serious: Yes (Hospitalization)
  Sender: FDA-Public Use
  Company Number: FR-ASTRAZENECA-2017SE84952

PATIENT
  Age: 13760 Day
  Sex: Female

DRUGS (4)
  1. ABILIFY [Suspect]
     Active Substance: ARIPIPRAZOLE
     Dosage: 4.0DF ONCE/SINGLE ADMINISTRATION
     Route: 048
     Dates: end: 20170721
  2. XEROQUEL [Suspect]
     Active Substance: QUETIAPINE FUMARATE
     Dosage: 4.0DF ONCE/SINGLE ADMINISTRATION
     Route: 048
     Dates: end: 20170721
  3. TERALITHE [Suspect]
     Active Substance: LITHIUM CARBONATE
     Dosage: 10.0DF ONCE/SINGLE ADMINISTRATION
     Route: 048
     Dates: end: 20170721
  4. SERESTA [Suspect]
     Active Substance: OXAZEPAM
     Dosage: 12.0DF ONCE/SINGLE ADMINISTRATION
     Route: 048
     Dates: end: 20170721

REACTIONS (1)
  - Toxicity to various agents [Recovered/Resolved]

NARRATIVE: CASE EVENT DATE: 20170721
